FAERS Safety Report 21325126 (Version 1)
Quarter: 2022Q3

REPORT INFORMATION
  Report Type: Spontaneous
  Country: NZ (occurrence: NZ)
  Receive Date: 20220912
  Receipt Date: 20220912
  Transmission Date: 20221026
  Serious: Yes (Other)
  Sender: FDA-Public Use
  Company Number: NZ-009507513-2008NZL012339

PATIENT
  Age: 42 Year
  Sex: Female

DRUGS (1)
  1. KEYTRUDA [Suspect]
     Active Substance: PEMBROLIZUMAB
     Indication: Metastatic malignant melanoma
     Dosage: AFTER FOUR CYCLES, 21 INFUSIONS
     Route: 042
     Dates: start: 2018, end: 2019

REACTIONS (11)
  - Melanoma recurrent [Unknown]
  - Rheumatoid arthritis [Unknown]
  - Neuropathy peripheral [Unknown]
  - Cancer pain [Unknown]
  - Adrenal disorder [Unknown]
  - Ill-defined disorder [Unknown]
  - Toxicity to various agents [Unknown]
  - Adverse drug reaction [Unknown]
  - Alopecia [Unknown]
  - Hypertension [Unknown]
  - Colitis [Unknown]

NARRATIVE: CASE EVENT DATE: 20180101
